FAERS Safety Report 10028447 (Version 1)
Quarter: 2014Q1

REPORT INFORMATION
  Report Type: Spontaneous
  Country: US (occurrence: None)
  Receive Date: 20140307
  Receipt Date: 20140307
  Transmission Date: 20141002
  Serious: Yes (Other)
  Sender: FDA-Public Use
  Company Number: 2167017

PATIENT
  Age: 26 Year
  Sex: Male
  Weight: 71 kg

DRUGS (4)
  1. PRECEDEX (DEXMEDETOMIDINE HYDROCHLORIDE) INJECTION (DEXMEDETOMIDINE HYDROCHLORIDE) [Suspect]
     Indication: SEDATION
     Route: 042
     Dates: start: 20140127
  2. PRECEDEX (DEXMEDETOMIDINE HYDROCHLORIDE) INJECTION (DEXMEDETOMIDINE HYDROCHLORIDE) [Suspect]
     Indication: SEDATION
     Route: 042
     Dates: start: 20140127
  3. NORMAL SALINE [Suspect]
     Indication: MEDICATION DILUTION
     Route: 042
     Dates: start: 20140127, end: 20140127
  4. QUETIAPINE [Suspect]
     Indication: PRODUCT USED FOR UNKNOWN INDICATION
     Route: 048
     Dates: start: 20140127

REACTIONS (2)
  - Electrocardiogram QT prolonged [None]
  - Electrocardiogram T wave inversion [None]
